FAERS Safety Report 7958769-5 (Version None)
Quarter: 2011Q4

REPORT INFORMATION
  Report Type: 
  Country: None (occurrence: None)
  Receive Date: 20111206
  Receipt Date: 20111130
  Transmission Date: 20120403
  Serious: Yes (Other)
  Sender: FDA-Public Use
  Company Number: US-JNJFOC-20110706085

PATIENT
  Sex: Female

DRUGS (6)
  1. LEVAQUIN [Suspect]
     Indication: LOWER RESPIRATORY TRACT INFECTION BACTERIAL
     Route: 048
     Dates: start: 20080601
  2. PREDNISONE TAB [Suspect]
     Indication: SINUS POLYP
     Route: 065
  3. PREDNISONE TAB [Suspect]
     Indication: HYPERSENSITIVITY
     Route: 065
  4. CIPROFLOXACIN [Suspect]
     Indication: INFECTION
     Route: 065
  5. METHYLPREDNISOLONE [Suspect]
     Indication: SINUS POLYP
     Route: 065
  6. METHYLPREDNISOLONE [Suspect]
     Indication: HYPERSENSITIVITY
     Route: 065

REACTIONS (5)
  - TENDONITIS [None]
  - MUSCLE ATROPHY [None]
  - TENDON PAIN [None]
  - PERIARTHRITIS [None]
  - TENDON RUPTURE [None]
